FAERS Safety Report 18676064 (Version 2)
Quarter: 2021Q1

REPORT INFORMATION
  Report Type: Report from Study
  Country: FR (occurrence: FR)
  Receive Date: 20201229
  Receipt Date: 20210319
  Transmission Date: 20210419
  Serious: Yes (Other)
  Sender: FDA-Public Use
  Company Number: FR-PFIZER INC-2020508247

PATIENT
  Sex: Male

DRUGS (3)
  1. ERLOTINIB [Suspect]
     Active Substance: ERLOTINIB
     Indication: LUNG ADENOCARCINOMA
     Dosage: 150 MG, 1X/DAY
  2. ERLOTINIB [Suspect]
     Active Substance: ERLOTINIB
     Dosage: 100 MG, 1X/DAY
  3. CRIZOTINIB [Suspect]
     Active Substance: CRIZOTINIB
     Indication: LUNG ADENOCARCINOMA
     Dosage: 250 MG, 2X/DAY

REACTIONS (1)
  - Hyperthyroidism [Unknown]
